FAERS Safety Report 13743246 (Version 1)
Quarter: 2017Q3

REPORT INFORMATION
  Report Type: Spontaneous
  Country: US (occurrence: US)
  Receive Date: 20170711
  Receipt Date: 20170711
  Transmission Date: 20171127
  Serious: Yes (Other)
  Sender: FDA-Public Use
  Company Number: US-MYLANLABS-2017M1034638

PATIENT

DRUGS (2)
  1. CALCIUM+D [Concomitant]
     Active Substance: CALCIUM\VITAMIN D
     Indication: PRODUCT USED FOR UNKNOWN INDICATION
     Dosage: UNK
  2. ATORVASTATIN [Suspect]
     Active Substance: ATORVASTATIN
     Indication: HYPERLIPIDAEMIA
     Dosage: 10 MG, QD
     Route: 048
     Dates: start: 20120213, end: 20170303

REACTIONS (10)
  - Pain [Unknown]
  - Myalgia [Unknown]
  - Nausea [Unknown]
  - Myelopathy [Unknown]
  - Hypoacusis [Unknown]
  - Scoliosis [Unknown]
  - Arthralgia [Recovered/Resolved]
  - Abdominal pain [Unknown]
  - Back pain [Unknown]
  - Muscle spasms [Unknown]
